FAERS Safety Report 10879623 (Version 1)
Quarter: 2015Q1

REPORT INFORMATION
  Report Type: Spontaneous
  Country: NL (occurrence: NL)
  Receive Date: 20150302
  Receipt Date: 20150302
  Transmission Date: 20150721
  Serious: Yes (Death)
  Sender: FDA-Public Use
  Company Number: NL-CELGENE-NLD-2015024701

PATIENT
  Age: 73 Year
  Sex: Male

DRUGS (1)
  1. AZACITIDINE INJECTABLE [Suspect]
     Active Substance: AZACITIDINE
     Indication: ACUTE MYELOID LEUKAEMIA
     Dosage: 75 MILLIGRAM/SQ. METER
     Route: 058

REACTIONS (4)
  - Injection site infection [Unknown]
  - Acute myeloid leukaemia [Fatal]
  - Leukaemia recurrent [Unknown]
  - Gastrointestinal disorder [Unknown]
